FAERS Safety Report 11379959 (Version 1)
Quarter: 2015Q3

REPORT INFORMATION
  Report Type: Spontaneous
  Country: FR (occurrence: FR)
  Receive Date: 20150814
  Receipt Date: 20150814
  Transmission Date: 20151125
  Serious: Yes (Disabling, Other)
  Sender: FDA-Public Use
  Company Number: FR-ABBVIE-15K-056-1422453-00

PATIENT
  Age: 32 Year
  Sex: Female
  Weight: 50 kg

DRUGS (5)
  1. BETADINE [Suspect]
     Active Substance: POVIDONE-IODINE
     Indication: PRODUCT USED FOR UNKNOWN INDICATION
     Route: 065
  2. CHROMIUM [Suspect]
     Active Substance: CHROMIC CHLORIDE\CHROMIUM
     Indication: PRODUCT USED FOR UNKNOWN INDICATION
     Route: 065
  3. HUMIRA [Suspect]
     Active Substance: ADALIMUMAB
     Indication: CROHN^S DISEASE
     Route: 065
     Dates: start: 201410
  4. MYCOSTER [Suspect]
     Active Substance: CICLOPIROX\CICLOPIROX OLAMINE
     Indication: PRODUCT USED FOR UNKNOWN INDICATION
     Dosage: COMPONENT
     Route: 065
  5. ZYRTEC [Concomitant]
     Active Substance: CETIRIZINE HYDROCHLORIDE
     Indication: PRODUCT USED FOR UNKNOWN INDICATION

REACTIONS (4)
  - Alopecia areata [Unknown]
  - Drug hypersensitivity [Unknown]
  - Fungal infection [Unknown]
  - Dyshidrotic eczema [Not Recovered/Not Resolved]

NARRATIVE: CASE EVENT DATE: 201501
